FAERS Safety Report 15743196 (Version 2)
Quarter: 2019Q1

REPORT INFORMATION
  Report Type: Report from Study
  Country: CN (occurrence: CN)
  Receive Date: 20181220
  Receipt Date: 20190206
  Transmission Date: 20190417
  Serious: Yes (Other)
  Sender: FDA-Public Use
  Company Number: CN-ROCHE-2229413

PATIENT

DRUGS (7)
  1. PEMETREXED. [Suspect]
     Active Substance: PEMETREXED
     Indication: NON-SMALL CELL LUNG CANCER
     Dosage: ON DAY 1
     Route: 041
  2. DOCETAXEL. [Suspect]
     Active Substance: DOCETAXEL
     Indication: NON-SMALL CELL LUNG CANCER
     Dosage: ON DAY 1
     Route: 041
  3. BEVACIZUMAB. [Suspect]
     Active Substance: BEVACIZUMAB
     Indication: NON-SMALL CELL LUNG CANCER
     Dosage: 15 MG/M2  OR 7.5 MG/M2 ON DAY 1
     Route: 042
  4. NEDAPLATIN [Suspect]
     Active Substance: NEDAPLATIN
     Indication: NON-SMALL CELL LUNG CANCER
     Route: 041
  5. GEMCITABINE [Suspect]
     Active Substance: GEMCITABINE\GEMCITABINE HYDROCHLORIDE
     Indication: NON-SMALL CELL LUNG CANCER
     Dosage: ON DAY 1 AND 8
     Route: 041
  6. CISPLATIN. [Suspect]
     Active Substance: CISPLATIN
     Indication: NON-SMALL CELL LUNG CANCER
     Route: 041
  7. CARBOPLATIN. [Suspect]
     Active Substance: CARBOPLATIN
     Indication: NON-SMALL CELL LUNG CANCER
     Dosage: AUC OF 5
     Route: 041

REACTIONS (9)
  - Proteinuria [Unknown]
  - Hepatic function abnormal [Unknown]
  - Bone marrow failure [Unknown]
  - Embolism venous [Unknown]
  - Gastrointestinal disorder [Unknown]
  - Haemorrhage [Unknown]
  - Hypertension [Unknown]
  - Haemoptysis [Unknown]
  - Deep vein thrombosis [Unknown]
